FAERS Safety Report 7611355-9 (Version None)
Quarter: 2011Q3

REPORT INFORMATION
  Report Type: 
  Country: None (occurrence: None)
  Receive Date: 20110715
  Receipt Date: 20110711
  Transmission Date: 20111222
  Serious: Yes (Death, Other)
  Sender: FDA-Public Use
  Company Number: FR-ROCHE-763228

PATIENT
  Sex: Male

DRUGS (14)
  1. NEXIUM [Concomitant]
  2. NEORAL [Concomitant]
  3. ROCEPHIN [Concomitant]
  4. METHOXY POLYETHYLENE GLYCOL-EPOETIN BETA [Suspect]
     Indication: NEPHROGENIC ANAEMIA
     Route: 065
     Dates: start: 20090918
  5. PREDNISONE [Concomitant]
  6. VANCOMYCINE HYDROCHLORIDE [Concomitant]
  7. PIPERACILLIN AND TAZOBACTAM [Concomitant]
  8. CELLCEPT [Concomitant]
  9. LERCANIDIPINE [Concomitant]
  10. SOTALOL HCL [Concomitant]
  11. CYMEVAN [Concomitant]
  12. TYGACIL [Concomitant]
  13. PRAVASTATIN [Concomitant]
  14. ATACAND [Concomitant]

REACTIONS (2)
  - ARRHYTHMIA [None]
  - PLATELET COUNT DECREASED [None]
